FAERS Safety Report 13599127 (Version 2)
Quarter: 2018Q2

REPORT INFORMATION
  Report Type: Spontaneous
  Country: IT (occurrence: IT)
  Receive Date: 20170531
  Receipt Date: 20180409
  Transmission Date: 20180711
  Serious: Yes (Hospitalization, Other)
  Sender: FDA-Public Use
  Company Number: PHHY2017IT075161

PATIENT
  Age: 44 Year
  Sex: Male

DRUGS (2)
  1. LEFLUNOMIDE. [Suspect]
     Active Substance: LEFLUNOMIDE
     Indication: PYODERMA GANGRENOSUM
     Dosage: 20 MG, QD
     Route: 048
  2. PREDNISONE. [Suspect]
     Active Substance: PREDNISONE
     Indication: PYODERMA GANGRENOSUM
     Dosage: INTERMITTENT DOSES IN THE RANGE OF 25-50 MG/DAY
     Route: 065

REACTIONS (11)
  - Dermatitis bullous [Recovering/Resolving]
  - Impetigo [Recovering/Resolving]
  - Product use in unapproved indication [Recovered/Resolved]
  - Staphylococcal infection [Recovered/Resolved]
  - Inflammation [Recovering/Resolving]
  - Drug ineffective [Recovered/Resolved]
  - Vasculitis necrotising [Recovering/Resolving]
  - Therapy non-responder [Recovering/Resolving]
  - Antiphospholipid syndrome [Recovered/Resolved]
  - Livedo reticularis [Recovering/Resolving]
  - Staphylococcal impetigo [Recovered/Resolved]
